FAERS Safety Report 15744539 (Version 1)
Quarter: 2018Q4

REPORT INFORMATION
  Report Type: Spontaneous
  Country: US (occurrence: US)
  Receive Date: 20181220
  Receipt Date: 20181220
  Transmission Date: 20190205
  Serious: Yes (Other)
  Sender: FDA-Public Use
  Company Number: US-MALLINCKRODT-T201804189

PATIENT
  Sex: Female

DRUGS (2)
  1. FENTANYL TRANSDERMAL SYSTEM [Suspect]
     Active Substance: FENTANYL
     Indication: RENAL DISORDER
     Dosage: 50 MCG, 1 EVERY 72 HOURS
     Route: 062
  2. HYDROCODONE/ACETAMINOPHEN [Suspect]
     Active Substance: ACETAMINOPHEN\HYDROCODONE
     Indication: PRODUCT USED FOR UNKNOWN INDICATION
     Dosage: UNK
     Route: 048

REACTIONS (6)
  - Accidental overdose [Unknown]
  - Muscle spasms [Unknown]
  - Hyperhidrosis [Unknown]
  - Muscle twitching [Recovering/Resolving]
  - Wrong technique in product usage process [Unknown]
  - Product adhesion issue [Unknown]
